FAERS Safety Report 24874287 (Version 1)
Quarter: 2025Q1

REPORT INFORMATION
  Report Type: Spontaneous
  Country: US (occurrence: None)
  Receive Date: 20250121
  Receipt Date: 20250121
  Transmission Date: 20250409
  Serious: No
  Sender: FDA-CTU
  Company Number: None

PATIENT
  Age: 22 Year
  Sex: Male
  Weight: 66.9 kg

DRUGS (1)
  1. DARATUMUMAB [Suspect]
     Active Substance: DARATUMUMAB
     Indication: Acute lymphocytic leukaemia refractory
     Route: 041
     Dates: start: 20250120, end: 20250120

REACTIONS (5)
  - Wrong technique in product usage process [None]
  - Drug delivery system issue [None]
  - Device use error [None]
  - Product container issue [None]
  - Product administration interrupted [None]

NARRATIVE: CASE EVENT DATE: 20250120
